FAERS Safety Report 5501131-5 (Version None)
Quarter: 2007Q4

REPORT INFORMATION
  Report Type: 
  Country: None (occurrence: None)
  Receive Date: 20071026
  Receipt Date: 20071010
  Transmission Date: 20080405
  Serious: Yes (Death, Hospitalization)
  Sender: FDA-Public Use
  Company Number: CTI_00919_2007

PATIENT
  Sex: Female
  Weight: 112.9457 kg

DRUGS (9)
  1. ZYFLO [Suspect]
     Indication: ASTHMA
     Dosage: (60 MG QID ORAL)
     Route: 048
     Dates: start: 20070701, end: 20070810
  2. AMIODARONE HCL [Concomitant]
  3. DIGOXIN [Concomitant]
  4. LOVENOX [Concomitant]
  5. ALBUTEROL [Concomitant]
  6. BUDESONIDE [Concomitant]
  7. ATROVENT [Concomitant]
  8. AVELOX [Concomitant]
  9. PREDNISONE [Concomitant]

REACTIONS (10)
  - ALANINE AMINOTRANSFERASE INCREASED [None]
  - ASPARTATE AMINOTRANSFERASE INCREASED [None]
  - BLOOD ALKALINE PHOSPHATASE INCREASED [None]
  - CARDIAC FAILURE CONGESTIVE [None]
  - CARDIOGENIC SHOCK [None]
  - CARDIOMEGALY [None]
  - CARDIOMYOPATHY [None]
  - CHOLECYSTECTOMY [None]
  - MYOCARDIAL INFARCTION [None]
  - MYOCARDITIS [None]
